FAERS Safety Report 6169813-2 (Version None)
Quarter: 2009Q2

REPORT INFORMATION
  Report Type: 
  Country: None (occurrence: None)
  Receive Date: 20090428
  Receipt Date: 20080926
  Transmission Date: 20091009
  Serious: No
  Sender: FDA-Public Use
  Company Number: US-AMGEN-US310093

PATIENT
  Sex: Male

DRUGS (7)
  1. SENSIPAR [Suspect]
     Indication: HYPERPARATHYROIDISM SECONDARY
     Route: 065
     Dates: start: 20080509, end: 20080926
  2. PHOSLO [Concomitant]
     Route: 065
  3. ALLOPURINOL [Concomitant]
     Route: 065
  4. PROTONIX [Concomitant]
     Route: 065
  5. VICODIN [Concomitant]
     Route: 065
  6. LASIX [Concomitant]
  7. LIPITOR [Concomitant]
     Route: 065

REACTIONS (3)
  - DISCOMFORT [None]
  - ERYTHEMA [None]
  - TENDERNESS [None]
